FAERS Safety Report 4311268-4 (Version None)
Quarter: 2004Q1

REPORT INFORMATION
  Report Type: 
  Country: None (occurrence: None)
  Receive Date: 20040302
  Receipt Date: 20040225
  Transmission Date: 20041129
  Serious: Yes (Hospitalization)
  Sender: FDA-Public Use
  Company Number: 234513K03USA

PATIENT
  Age: 26 Year
  Sex: Male

DRUGS (1)
  1. REBIF [Suspect]
     Indication: MULTIPLE SCLEROSIS
     Dosage: 44 MCG, 3 IN 1 WEEKS
     Dates: start: 20030820

REACTIONS (4)
  - CELLULITIS STREPTOCOCCAL [None]
  - FEELING ABNORMAL [None]
  - INJECTION SITE CELLULITIS [None]
  - NAUSEA [None]
